FAERS Safety Report 22075519 (Version 3)
Quarter: 2023Q1

REPORT INFORMATION
  Report Type: Spontaneous
  Country: US (occurrence: US)
  Receive Date: 20230308
  Receipt Date: 20230316
  Transmission Date: 20230418
  Serious: No
  Sender: FDA-Public Use
  Company Number: US-PFIZER INC-202300094916

PATIENT
  Age: 31 Year
  Sex: Female
  Weight: 98.7 kg

DRUGS (2)
  1. PACLITAXEL [Suspect]
     Active Substance: PACLITAXEL
     Dosage: UNK (80 MG/M2 IV CYCLES 1 - 4, EVERY 21 DAYS, DAYS 1, 8, AND 15)
  2. CARBOPLATIN [Suspect]
     Active Substance: CARBOPLATIN
     Dosage: UNK (2 AUC IV CYCLES 1 - 4, EVERY 21 DAYS, GIVEN CN DAYS 1, 8, AND 15)

REACTIONS (1)
  - Drug hypersensitivity [Unknown]
